FAERS Safety Report 12889759 (Version 2)
Quarter: 2016Q4

REPORT INFORMATION
  Report Type: Report from Study
  Country: DE (occurrence: DE)
  Receive Date: 20161027
  Receipt Date: 20161201
  Transmission Date: 20170207
  Serious: No
  Sender: FDA-Public Use
  Company Number: DE-ROCHE-1846960

PATIENT
  Age: 80 Year
  Sex: Female
  Weight: 48 kg

DRUGS (18)
  1. CARBOPLATIN. [Suspect]
     Active Substance: CARBOPLATIN
     Indication: NON-SMALL CELL LUNG CANCER STAGE IV
     Dosage: (TARGET AUC OF 6 MG/ML/MIN) PER PROTOCOL ?DATE OF MOST RECENT DOSE: 21/SEP/2016 AT 537 MG
     Route: 042
     Dates: start: 20160921
  2. RANITIDIN [Concomitant]
     Active Substance: RANITIDINE HYDROCHLORIDE
     Route: 065
     Dates: start: 20161012, end: 20161012
  3. APREPITANT. [Concomitant]
     Active Substance: APREPITANT
     Indication: PROPHYLACTIC CHEMOTHERAPY
     Route: 065
     Dates: start: 20160921, end: 20160923
  4. PANTOZOL [Concomitant]
     Active Substance: PANTOPRAZOLE SODIUM
     Indication: PROPHYLAXIS
  5. CLEMASTIN [Concomitant]
     Active Substance: CLEMASTINE
     Route: 065
     Dates: start: 20161012, end: 20161012
  6. PARACODIN [Concomitant]
     Active Substance: DIHYDROCODEINE BITARTRATE
     Indication: COUGH
     Route: 065
     Dates: start: 20161012
  7. PANTOZOL [Concomitant]
     Active Substance: PANTOPRAZOLE SODIUM
     Indication: GASTRITIS
     Route: 065
     Dates: start: 20160921
  8. VERTIGOHEEL [Concomitant]
     Active Substance: HOMEOPATHICS
     Indication: VERTIGO
     Route: 065
     Dates: start: 20161012
  9. ATEZOLIZUMAB [Suspect]
     Active Substance: ATEZOLIZUMAB
     Indication: NON-SMALL CELL LUNG CANCER STAGE IV
     Dosage: DATE OF MOST RECENT DOSE: 21/SEP/2016
     Route: 042
     Dates: start: 20160921
  10. PACLITAXEL. [Suspect]
     Active Substance: PACLITAXEL
     Indication: NON-SMALL CELL LUNG CANCER STAGE IV
     Dosage: DATE OF MOST RECENT DOSE: 21/SEP/2016 AT 288 MG
     Route: 042
     Dates: start: 20160921
  11. CLEMASTIN [Concomitant]
     Active Substance: CLEMASTINE
     Indication: PROPHYLACTIC CHEMOTHERAPY
     Route: 065
     Dates: start: 20160921, end: 20160921
  12. RANITIDIN [Concomitant]
     Active Substance: RANITIDINE HYDROCHLORIDE
     Indication: PROPHYLACTIC CHEMOTHERAPY
     Route: 065
     Dates: start: 20160921, end: 20160921
  13. FOLSAN [Concomitant]
     Active Substance: FOLIC ACID
     Route: 065
     Dates: start: 20160921
  14. IBUFLAM (GERMANY) [Concomitant]
     Indication: PAIN
     Route: 065
     Dates: start: 201603
  15. APREPITANT. [Concomitant]
     Active Substance: APREPITANT
     Route: 065
     Dates: start: 20161012, end: 20161014
  16. GRANISETRON [Concomitant]
     Active Substance: GRANISETRON
     Indication: PROPHYLACTIC CHEMOTHERAPY
     Route: 065
     Dates: start: 20160921, end: 20160921
  17. GRANISETRON [Concomitant]
     Active Substance: GRANISETRON
     Route: 065
     Dates: start: 20161012, end: 20161012
  18. CYTOBION [Concomitant]
     Indication: VITAMIN B12 DEFICIENCY
     Route: 065
     Dates: start: 20160921

REACTIONS (1)
  - Infusion related reaction [Recovered/Resolved]

NARRATIVE: CASE EVENT DATE: 20161012
